FAERS Safety Report 7799479-7 (Version None)
Quarter: 2011Q4

REPORT INFORMATION
  Report Type: 
  Country: None (occurrence: None)
  Receive Date: 20111006
  Receipt Date: 20110929
  Transmission Date: 20120403
  Serious: Yes (Life-Threatening, Other)
  Sender: FDA-Public Use
  Company Number: PHHY2011JP79534

PATIENT
  Age: 85 Year
  Sex: Male

DRUGS (15)
  1. DEPAKENE [Concomitant]
     Dosage: 1000 MG, UNK
     Dates: start: 20110812
  2. RIVASTIGMINE [Suspect]
     Indication: DEMENTIA ALZHEIMER'S TYPE
     Dosage: 4.5 MG, UNK
     Route: 062
     Dates: start: 20110727, end: 20110805
  3. TAMSULOSIN HCL [Concomitant]
     Dosage: UNK
  4. JUVELA [Concomitant]
     Dosage: UNK
  5. DEPAKENE [Concomitant]
     Dosage: 800 MG, PER DAY
     Dates: start: 20110805, end: 20110812
  6. ZOLPIDEM [Concomitant]
     Dosage: UNK
  7. SODIUM CHLORIDE INJ [Concomitant]
     Dosage: 2 G, UNK
     Dates: start: 20110702, end: 20110716
  8. SODIUM CHLORIDE INJ [Concomitant]
     Dosage: 2.70 G, UNK
     Dates: start: 20110813
  9. SELBEX [Concomitant]
     Dosage: UNK
  10. SENNOSIDE [Concomitant]
     Dosage: UNK
  11. HANGEKOUBOKUTOU [Concomitant]
     Dosage: UNK
  12. DEPAKENE [Concomitant]
     Dosage: 200 MG, PER DAY
     Dates: end: 20110804
  13. SIGMART [Concomitant]
     Dosage: UNK
  14. SODIUM CHLORIDE INJ [Concomitant]
     Dosage: 2.50 G, UNK
     Dates: start: 20110716, end: 20110813
  15. NEUROTROPIN [Concomitant]
     Dosage: UNK

REACTIONS (5)
  - HYPONATRAEMIA [None]
  - COMPLEX PARTIAL SEIZURES [None]
  - STATUS EPILEPTICUS [None]
  - DRUG LEVEL DECREASED [None]
  - CONVULSION [None]
